FAERS Safety Report 7636087-2 (Version None)
Quarter: 2011Q3

REPORT INFORMATION
  Report Type: 
  Country: None (occurrence: None)
  Receive Date: 20110726
  Receipt Date: 20110718
  Transmission Date: 20111222
  Serious: Yes (Hospitalization)
  Sender: FDA-Public Use
  Company Number: FR-ROCHE-790952

PATIENT
  Weight: 64 kg

DRUGS (6)
  1. MYCOPHENOLATE MOFETIL [Suspect]
     Dosage: DOSE REDUCED
     Route: 048
     Dates: start: 20110716
  2. PREDNISOLONE [Suspect]
     Route: 048
     Dates: start: 20110716
  3. MYCOPHENOLATE MOFETIL [Suspect]
     Route: 048
     Dates: start: 20110517
  4. EVEROLIMUS [Suspect]
     Dosage: DOSE REDUCED
     Route: 048
     Dates: start: 20110716
  5. EVEROLIMUS [Suspect]
     Dosage: DOSE: 1.5 (UNITS NOT PROVIDED)
     Route: 048
     Dates: start: 20110628
  6. PREDNISOLONE [Suspect]
     Route: 048
     Dates: start: 20110517

REACTIONS (2)
  - FEBRILE NEUTROPENIA [None]
  - APHTHOUS STOMATITIS [None]
